FAERS Safety Report 21278075 (Version 1)
Quarter: 2022Q3

REPORT INFORMATION
  Report Type: Spontaneous
  Country: US (occurrence: US)
  Receive Date: 20220831
  Receipt Date: 20220831
  Transmission Date: 20221026
  Serious: Yes (Other)
  Sender: FDA-Public Use
  Company Number: US-ABBVIE-22K-163-4275399-00

PATIENT
  Age: 60 Year
  Sex: Female
  Weight: 97.610 kg

DRUGS (6)
  1. HUMIRA [Suspect]
     Active Substance: ADALIMUMAB
     Indication: Ankylosing spondylitis
     Route: 058
     Dates: start: 201909, end: 202004
  2. HUMIRA [Suspect]
     Active Substance: ADALIMUMAB
     Route: 058
     Dates: start: 202005, end: 202108
  3. PFIZER-BIONTECH COVID-19 VACCINE [Concomitant]
     Active Substance: TOZINAMERAN
     Indication: COVID-19 immunisation
     Dosage: PFIZER
     Route: 030
     Dates: start: 20210125, end: 20210125
  4. PFIZER-BIONTECH COVID-19 VACCINE [Concomitant]
     Active Substance: TOZINAMERAN
     Dosage: PFIZER
     Route: 030
     Dates: start: 20210215, end: 20210215
  5. PFIZER-BIONTECH COVID-19 VACCINE [Concomitant]
     Active Substance: TOZINAMERAN
     Dosage: PFIZER
     Route: 030
     Dates: start: 20210901, end: 20210901
  6. TOPAMAX [Concomitant]
     Active Substance: TOPIRAMATE
     Indication: Ankylosing spondylitis

REACTIONS (6)
  - COVID-19 [Recovered/Resolved]
  - Anal incontinence [Recovering/Resolving]
  - Off label use [Unknown]
  - Paraesthesia [Recovered/Resolved]
  - Pain in extremity [Recovering/Resolving]
  - Loss of bladder sensation [Unknown]

NARRATIVE: CASE EVENT DATE: 20200401
